FAERS Safety Report 8837001 (Version 2)
Quarter: 2012Q4

REPORT INFORMATION
  Report Type: 
  Country: ES (occurrence: ES)
  Receive Date: 20121012
  Receipt Date: 20121101
  Transmission Date: 20130627
  Serious: Yes (Hospitalization)
  Sender: FDA-Public Use
  Company Number: ES-PFIZER INC-2012251140

PATIENT
  Age: 81 Year
  Sex: Male

DRUGS (3)
  1. VENLAFAXINE HYDROCHOLRIDE [Suspect]
     Dosage: 75 mg, 1x/day
     Route: 048
     Dates: start: 2008
  2. DUROGESIC [Interacting]
     Indication: PAIN
     Dosage: 75 ug, weekly
     Route: 062
     Dates: start: 20120217, end: 20120217
  3. DITROPAN [Interacting]
     Dosage: 5 mg, 1x/day
     Route: 048
     Dates: start: 2008

REACTIONS (3)
  - Confusional state [Recovered/Resolved]
  - Drug interaction [Recovered/Resolved]
  - Blood pressure increased [None]
